FAERS Safety Report 23771315 (Version 4)
Quarter: 2025Q1

REPORT INFORMATION
  Report Type: Report from Study
  Country: CA (occurrence: CA)
  Receive Date: 20240423
  Receipt Date: 20250215
  Transmission Date: 20250409
  Serious: Yes (Other)
  Sender: CELLTRION
  Company Number: CA-CELLTRION INC.-2024CA009143

PATIENT

DRUGS (12)
  1. RITUXIMAB-ABBS [Suspect]
     Active Substance: RITUXIMAB-ABBS
     Indication: Rheumatoid arthritis
     Dosage: 1000 MG, DAY 1 AND15 / INF#5
     Route: 042
     Dates: start: 20230706
  2. RITUXIMAB-ABBS [Suspect]
     Active Substance: RITUXIMAB-ABBS
     Dosage: 1000 MG, Q2WEEKS EVERY6MONT (2 VIALS)
     Route: 042
     Dates: start: 20230706
  3. PREDNISONE [Concomitant]
     Active Substance: PREDNISONE
  4. METHOTREXATE [Concomitant]
     Active Substance: METHOTREXATE
     Dosage: 2.5 MG 6 TABS ONCE WEEKLY ON THURSDAYS
  5. HYDROCHLOROTHIAZIDE [Concomitant]
     Active Substance: HYDROCHLOROTHIAZIDE
  6. FOLIC ACID [Concomitant]
     Active Substance: FOLIC ACID
     Dosage: ONCE WEEKLY THE DAY AFTER METHOTREXATE
  7. MELOXICAM [Concomitant]
     Active Substance: MELOXICAM
  8. VIT D [VITAMIN D NOS] [Concomitant]
  9. ACETAMINOPHEN [Concomitant]
     Active Substance: ACETAMINOPHEN
     Indication: Premedication
  10. ACETAMINOPHEN [Concomitant]
     Active Substance: ACETAMINOPHEN
     Indication: Pain
  11. DIPHENHYDRAMINE [Concomitant]
     Active Substance: DIPHENHYDRAMINE
     Indication: Premedication
  12. METHYLPREDNISOLONE [Concomitant]
     Active Substance: METHYLPREDNISOLONE
     Indication: Premedication

REACTIONS (6)
  - Shoulder arthroplasty [Unknown]
  - Hypertension [Unknown]
  - Influenza like illness [Not Recovered/Not Resolved]
  - Pruritus [Recovered/Resolved]
  - Intentional overdose [Unknown]
  - Intentional dose omission [Unknown]

NARRATIVE: CASE EVENT DATE: 20241230
